FAERS Safety Report 6390043-3 (Version None)
Quarter: 2009Q4

REPORT INFORMATION
  Report Type: 
  Country: None (occurrence: None)
  Receive Date: 20091001
  Receipt Date: 20090921
  Transmission Date: 20100525
  Serious: Yes (Other)
  Sender: FDA-Public Use
  Company Number: IMP_04569_2009

PATIENT
  Sex: Male

DRUGS (2)
  1. CLARITIN-D [Suspect]
     Indication: MULTIPLE ALLERGIES
     Dosage: DF
  2. ZICAM [Concomitant]

REACTIONS (2)
  - DYSPNOEA [None]
  - OROPHARYNGEAL BLISTERING [None]
